FAERS Safety Report 13996351 (Version 4)
Quarter: 2017Q4

REPORT INFORMATION
  Report Type: Spontaneous
  Country: US (occurrence: US)
  Receive Date: 20170921
  Receipt Date: 20171220
  Transmission Date: 20180321
  Serious: Yes (Death, Life-Threatening, Hospitalization, Other)
  Sender: FDA-Public Use
  Company Number: US-VIFOR (INTERNATIONAL) INC.-VIT-2017-09717

PATIENT
  Age: 47 Year
  Sex: Male
  Weight: 96.9 kg

DRUGS (5)
  1. HEPARIN [Concomitant]
     Active Substance: HEPARIN SODIUM
     Route: 040
  2. SODIUM CHLORIDE. [Concomitant]
     Active Substance: SODIUM CHLORIDE
  3. VENOFER [Suspect]
     Active Substance: IRON SUCROSE
     Indication: PRODUCT USED FOR UNKNOWN INDICATION
     Route: 040
  4. MIRCERA [Suspect]
     Active Substance: METHOXY POLYETHYLENE GLYCOL-EPOETIN BETA
     Indication: NEPHROGENIC ANAEMIA
     Route: 040
     Dates: start: 20170906, end: 20170906
  5. HECTOROL [Concomitant]
     Active Substance: DOXERCALCIFEROL
     Route: 040

REACTIONS (8)
  - Hyperhidrosis [Unknown]
  - Dyspnoea [Unknown]
  - Haematoma [Unknown]
  - Death [Fatal]
  - Pulmonary embolism [Unknown]
  - Pallor [Unknown]
  - Embolism [Unknown]
  - Loss of consciousness [Unknown]

NARRATIVE: CASE EVENT DATE: 2017
